FAERS Safety Report 9652881 (Version 2)
Quarter: 2013Q4

REPORT INFORMATION
  Report Type: Spontaneous
  Country: IN (occurrence: IN)
  Receive Date: 20131029
  Receipt Date: 20131029
  Transmission Date: 20140711
  Serious: Yes (Other)
  Sender: FDA-Public Use
  Company Number: IN-SA-THYM-1003974

PATIENT
  Age: 46 Year
  Sex: 0
  Weight: 51.2 kg

DRUGS (6)
  1. THYMOGLOBULIN [Suspect]
     Indication: BONE MARROW CONDITIONING REGIMEN
     Route: 065
     Dates: start: 20120922, end: 20120922
  2. THYMOGLOBULIN [Suspect]
     Indication: BONE MARROW CONDITIONING REGIMEN
     Route: 065
     Dates: start: 20120924, end: 20120924
  3. THYMOGLOBULIN [Suspect]
     Indication: BONE MARROW CONDITIONING REGIMEN
     Route: 065
     Dates: start: 20120926, end: 20120926
  4. VINGRAF [Concomitant]
     Dates: start: 20120920
  5. CELLCEPT [Concomitant]
     Dates: start: 20120920
  6. PREDNISOLONE [Concomitant]
     Dates: start: 20120926

REACTIONS (1)
  - Transplant rejection [Not Recovered/Not Resolved]
